FAERS Safety Report 13335010 (Version 6)
Quarter: 2020Q2

REPORT INFORMATION
  Report Type: Spontaneous
  Country: GB (occurrence: US)
  Receive Date: 20170314
  Receipt Date: 20200416
  Transmission Date: 20200713
  Serious: Yes (Death, Other)
  Sender: FDA-Public Use
  Company Number: US-ASTELLAS-2017US009394

PATIENT
  Age: 77 Year
  Sex: Female

DRUGS (4)
  1. TARCEVA [Suspect]
     Active Substance: ERLOTINIB HYDROCHLORIDE
     Indication: NON-SMALL CELL LUNG CANCER
     Route: 065
     Dates: start: 201302
  2. TARCEVA [Suspect]
     Active Substance: ERLOTINIB HYDROCHLORIDE
     Indication: BRONCHIAL CARCINOMA
     Route: 048
     Dates: start: 20140122
  3. IBUPROFEN. [Concomitant]
     Active Substance: IBUPROFEN
     Indication: PRODUCT USED FOR UNKNOWN INDICATION
     Dosage: UNK UNK, UNKNOWN FREQ.
     Route: 065
  4. TARCEVA [Suspect]
     Active Substance: ERLOTINIB HYDROCHLORIDE
     Indication: BRONCHIAL CARCINOMA

REACTIONS (21)
  - Death [Fatal]
  - Gingival blister [Unknown]
  - Vision blurred [Not Recovered/Not Resolved]
  - Pain [Not Recovered/Not Resolved]
  - Vision blurred [Unknown]
  - Dry mouth [Unknown]
  - Mass [Unknown]
  - Musculoskeletal stiffness [Unknown]
  - Device physical property issue [Unknown]
  - Gingival swelling [Unknown]
  - Rash [Unknown]
  - Erythema [Unknown]
  - Joint stiffness [Unknown]
  - Diarrhoea [Unknown]
  - Rash [Unknown]
  - Basal cell carcinoma [Recovered/Resolved]
  - Nasal oedema [Unknown]
  - Gastric disorder [Unknown]
  - Osteoarthritis [Unknown]
  - Gingival disorder [Unknown]
  - Dry skin [Unknown]

NARRATIVE: CASE EVENT DATE: 20151118
